FAERS Safety Report 19117742 (Version 1)
Quarter: 2021Q2

REPORT INFORMATION
  Report Type: Not Available
  Country: US (occurrence: None)
  Receive Date: 20210409
  Receipt Date: 20210409
  Transmission Date: 20210717
  Serious: No
  Sender: FDA-Public Use
  Company Number: US-AKORN-165048

PATIENT

DRUGS (1)
  1. TETRACAINE HCL INJECTION 1%, USP [Suspect]
     Active Substance: TETRACAINE HYDROCHLORIDE

REACTIONS (1)
  - Drug ineffective [Unknown]
